FAERS Safety Report 7711058-6 (Version None)
Quarter: 2011Q3

REPORT INFORMATION
  Report Type: 
  Country: None (occurrence: None)
  Receive Date: 20110826
  Receipt Date: 20110818
  Transmission Date: 20111222
  Serious: Yes (Hospitalization)
  Sender: FDA-Public Use
  Company Number: US-BIOGENIDEC-2010BI038121

PATIENT
  Age: 54 Year
  Sex: Female

DRUGS (1)
  1. TYSABRI [Suspect]
     Indication: MULTIPLE SCLEROSIS
     Route: 042
     Dates: start: 20090716, end: 20101013

REACTIONS (5)
  - COLITIS [None]
  - BREAST CALCIFICATIONS [None]
  - FATIGUE [None]
  - DECUBITUS ULCER [None]
  - BREAST CANCER IN SITU [None]
